FAERS Safety Report 14402379 (Version 2)
Quarter: 2018Q1

REPORT INFORMATION
  Report Type: Report from Study
  Country: DE (occurrence: DE)
  Receive Date: 20180117
  Receipt Date: 20180124
  Transmission Date: 20180509
  Serious: Yes (Hospitalization)
  Sender: FDA-Public Use
  Company Number: DE-AMGEN-DEUNI2018005060

PATIENT
  Age: 68 Year
  Sex: Female

DRUGS (2)
  1. DENOSUMAB [Suspect]
     Active Substance: DENOSUMAB
     Indication: PRODUCT USED FOR UNKNOWN INDICATION
     Dosage: 120 MG, Q4WK
     Route: 058
     Dates: start: 201105, end: 201505
  2. DENOSUMAB [Suspect]
     Active Substance: DENOSUMAB
     Dosage: 120 MG, Q3MO
     Route: 058
     Dates: start: 20150910

REACTIONS (2)
  - Oral cavity fistula [Recovered/Resolved]
  - Abscess oral [Recovered/Resolved]

NARRATIVE: CASE EVENT DATE: 20170911
